FAERS Safety Report 4822412-4 (Version None)
Quarter: 2005Q4

REPORT INFORMATION
  Report Type: 
  Country: None (occurrence: None)
  Receive Date: 20051104
  Receipt Date: 20051026
  Transmission Date: 20060501
  Serious: Yes (Hospitalization, Other)
  Sender: FDA-Public Use
  Company Number: ITWYE091126OCT05

PATIENT
  Age: 46 Year
  Sex: Male

DRUGS (1)
  1. TAZOCIN (PIPERACILLIN/TAZOBACTAM, INJECTION) [Suspect]
     Indication: PNEUMONIA BACTERIAL
     Dosage: 4.5 G 1X PER 1 DAY INTRAVENOUS
     Route: 042
     Dates: start: 20051011, end: 20051016

REACTIONS (2)
  - ERYTHEMA [None]
  - PRURITUS GENERALISED [None]
